FAERS Safety Report 14146928 (Version 2)
Quarter: 2017Q4

REPORT INFORMATION
  Report Type: Spontaneous
  Country: BE (occurrence: BE)
  Receive Date: 20171031
  Receipt Date: 20171130
  Transmission Date: 20180321
  Serious: Yes (Other)
  Sender: FDA-Public Use
  Company Number: BE-ELI_LILLY_AND_COMPANY-BE201710010898

PATIENT
  Age: 14 Year
  Sex: Male
  Weight: 48 kg

DRUGS (2)
  1. STRATTERA [Suspect]
     Active Substance: ATOMOXETINE HYDROCHLORIDE
     Indication: ATTENTION DEFICIT/HYPERACTIVITY DISORDER
     Dosage: 100 MG, EACH MORNING
     Route: 065
     Dates: start: 2016
  2. RISPERDAL [Concomitant]
     Active Substance: RISPERIDONE
     Indication: ABNORMAL BEHAVIOUR
     Dosage: 0.6 ML, EACH EVENING
     Route: 065
     Dates: start: 20170331

REACTIONS (1)
  - Opiates positive [Unknown]

NARRATIVE: CASE EVENT DATE: 20170927
